FAERS Safety Report 25414712 (Version 2)
Quarter: 2025Q2

REPORT INFORMATION
  Report Type: Spontaneous
  Country: GB (occurrence: GB)
  Receive Date: 20250609
  Receipt Date: 20250610
  Transmission Date: 20250717
  Serious: Yes (Life-Threatening, Other)
  Sender: NOVARTIS
  Company Number: GB-002147023-NVSC2025GB091433

PATIENT

DRUGS (1)
  1. KISQALI [Suspect]
     Active Substance: RIBOCICLIB SUCCINATE
     Indication: Product used for unknown indication
     Route: 065

REACTIONS (3)
  - Liver function test increased [Unknown]
  - Transaminases abnormal [Unknown]
  - Metastatic neoplasm [Unknown]
